FAERS Safety Report 9164702 (Version 1)
Quarter: 2013Q1

REPORT INFORMATION
  Report Type: Spontaneous
  Country: GR (occurrence: GR)
  Receive Date: 20130315
  Receipt Date: 20130315
  Transmission Date: 20140127
  Serious: Yes (Death, Hospitalization)
  Sender: FDA-Public Use
  Company Number: GR-JNJFOC-20130306852

PATIENT
  Age: 78 Year
  Sex: Male

DRUGS (4)
  1. SIMPONI [Suspect]
     Indication: RHEUMATOID ARTHRITIS
     Route: 058
     Dates: end: 201209
  2. METHOTREXATE [Concomitant]
     Route: 065
  3. CORTISONE [Concomitant]
  4. PENICILLAMINE HYDROCHLORIDE [Concomitant]
     Route: 065

REACTIONS (2)
  - Lymphoma [Fatal]
  - Organ failure [Fatal]
